FAERS Safety Report 7403843 (Version 3)
Quarter: 2013Q2

REPORT INFORMATION
  Report Type: Report from Study
  Country: JP (occurrence: JP)
  Receive Date: 20100528
  Receipt Date: 20130423
  Transmission Date: 20140414
  Serious: Yes (Hospitalization, Other)
  Sender: FDA-Public Use
  Company Number: PHHY2010JP32334

PATIENT
  Age: 54 Year
  Sex: Male

DRUGS (57)
  1. LEPONEX / CLOZARIL [Suspect]
     Indication: SCHIZOPHRENIA, PARANOID TYPE
     Dosage: 300 MG, DAILY
     Route: 048
     Dates: start: 20090803, end: 20090913
  2. LEPONEX / CLOZARIL [Suspect]
     Dosage: 350 MG, DAILY
     Route: 048
     Dates: start: 20090914, end: 20100617
  3. LEPONEX / CLOZARIL [Suspect]
     Dosage: 50 MG, DAILY
     Route: 048
     Dates: start: 20100618, end: 20100621
  4. LEPONEX / CLOZARIL [Suspect]
     Dosage: 12.5 MG, DAILY
     Route: 048
     Dates: start: 20100706, end: 20100707
  5. LEPONEX / CLOZARIL [Suspect]
     Dosage: 25 MG, DAILY
     Route: 048
     Dates: start: 20100708, end: 20100710
  6. LEPONEX / CLOZARIL [Suspect]
     Dosage: 50 MG, DAILY
     Route: 048
     Dates: start: 20100711, end: 20100712
  7. LEPONEX / CLOZARIL [Suspect]
     Dosage: 75 MG, DAILY
     Route: 048
     Dates: start: 20100713, end: 20100715
  8. LEPONEX / CLOZARIL [Suspect]
     Dosage: 100 MG, DAILY
     Route: 048
     Dates: start: 20100716, end: 20100718
  9. LEPONEX / CLOZARIL [Suspect]
     Dosage: 125 MG, DAILY
     Route: 048
     Dates: start: 20100719, end: 20100721
  10. LEPONEX / CLOZARIL [Suspect]
     Dosage: 150 MG, DAILY
     Route: 048
     Dates: start: 20100722, end: 20100724
  11. LEPONEX / CLOZARIL [Suspect]
     Dosage: 175 MG, DAILY
     Route: 048
     Dates: start: 20100725, end: 20100727
  12. LEPONEX / CLOZARIL [Suspect]
     Dosage: 200 MG, DAILY
     Route: 048
     Dates: start: 20100728, end: 20101101
  13. LEPONEX / CLOZARIL [Suspect]
     Dosage: 225 MG, DAILY
     Route: 048
     Dates: start: 20101102, end: 20101213
  14. LEPONEX / CLOZARIL [Suspect]
     Dosage: 250 MG, DAILY
     Route: 048
     Dates: start: 20101214, end: 20110108
  15. LEPONEX / CLOZARIL [Suspect]
     Dosage: 300 MG, DAILY
     Route: 048
     Dates: start: 20110109, end: 20110131
  16. LEPONEX / CLOZARIL [Suspect]
     Dosage: 350 MG, DAILY
     Route: 048
     Dates: start: 20110201, end: 20110214
  17. LEPONEX / CLOZARIL [Suspect]
     Dosage: 400 MG, DAILY
     Route: 048
     Dates: start: 20110215, end: 20110531
  18. LEPONEX / CLOZARIL [Suspect]
     Dosage: 450 MG, DAILY
     Route: 048
     Dates: start: 20110601, end: 20110607
  19. LEPONEX / CLOZARIL [Suspect]
     Dosage: 500 MG, DAILY
     Route: 048
     Dates: start: 20110608, end: 20110804
  20. CARBAMAZEPINE [Concomitant]
     Dosage: UNK
  21. WYPAX [Concomitant]
     Dosage: UNK
     Route: 048
     Dates: start: 20100204
  22. WYPAX [Concomitant]
     Dosage: 3 MG
     Route: 048
  23. WYPAX [Concomitant]
     Dosage: 2 MG
     Route: 048
     Dates: end: 20110623
  24. CERCINE [Concomitant]
     Dosage: UNK
     Route: 048
     Dates: start: 20100204
  25. CERCINE [Concomitant]
     Dosage: 5 MG
     Route: 048
     Dates: end: 20110426
  26. SERENACE [Concomitant]
     Dosage: UNK
     Route: 048
     Dates: start: 20100204
  27. SERENACE [Concomitant]
     Dosage: 1.5 MG
     Route: 048
     Dates: end: 20110426
  28. RIVOTRIL [Concomitant]
     Dosage: UNK
     Route: 048
     Dates: start: 20100204
  29. RIVOTRIL [Concomitant]
     Dosage: 2 MG
     Route: 048
     Dates: end: 20110426
  30. MYSLEE [Concomitant]
     Indication: SCHIZOPHRENIA, PARANOID TYPE
     Dosage: 5 MG, UNK
     Route: 048
     Dates: start: 20100204, end: 20100908
  31. BENZALIN [Concomitant]
     Dosage: 10 MG
     Route: 048
     Dates: start: 20100204
  32. BENZALIN [Concomitant]
     Dosage: 5 MG
     Route: 048
  33. BENZALIN [Concomitant]
     Dosage: 10 MG
     Route: 048
     Dates: end: 20110426
  34. METHYCOBAL [Concomitant]
     Dosage: 1.5 MG
     Route: 048
     Dates: start: 20100515, end: 20110516
  35. CALONAL [Concomitant]
     Dosage: 400 MG
     Route: 048
     Dates: start: 20100515
  36. CALONAL [Concomitant]
     Dosage: 800 MG
     Route: 048
     Dates: end: 20100802
  37. ZITHROMAC [Concomitant]
     Dosage: 2000 MG
     Route: 048
     Dates: start: 20100513
  38. ZITHROMAC [Concomitant]
     Dosage: 2000 MG
     Route: 048
     Dates: end: 20100615
  39. SENNOSIDE [Concomitant]
     Dosage: 48 MG
     Route: 048
     Dates: start: 20100204
  40. SENNOSIDE [Concomitant]
     Dosage: 24 MG
     Route: 048
  41. SILECE [Concomitant]
     Dosage: 2 MG
     Route: 048
     Dates: start: 20100204
  42. SILECE [Concomitant]
     Dosage: 1 MG
     Route: 048
  43. SILECE [Concomitant]
     Dosage: 0.5 MG
     Route: 048
     Dates: end: 20100831
  44. FLOMOX [Concomitant]
     Dosage: 200 MG
     Route: 048
     Dates: start: 20100710
  45. FLOMOX [Concomitant]
     Dosage: 300 MG
     Route: 048
     Dates: end: 20100802
  46. ROCEPHIN [Concomitant]
     Dosage: 2000 MG
     Route: 042
     Dates: start: 20100513, end: 20100521
  47. FESIN [Concomitant]
     Dosage: 80 MG
     Route: 042
     Dates: start: 20100623, end: 20100701
  48. ZOSYN [Concomitant]
     Dosage: 4500 MG
     Route: 042
     Dates: start: 20100707, end: 20100712
  49. FERROMIA [Concomitant]
     Dosage: 100 MG
     Route: 048
     Dates: start: 20100522
  50. FERROMIA [Concomitant]
     Dosage: 200 MG
     Route: 048
  51. FERROMIA [Concomitant]
     Dosage: 100 MG
     Route: 048
     Dates: end: 20100816
  52. RISPERDAL [Concomitant]
     Dosage: 1 MG
     Route: 048
     Dates: start: 20110513, end: 20110728
  53. LIMAS [Concomitant]
     Dosage: 100 MG
     Route: 048
     Dates: start: 20110621
  54. MEILAX [Concomitant]
     Dosage: 2 MG
     Route: 048
     Dates: start: 20110624
  55. MEIACT [Concomitant]
     Dosage: 300 MG
     Route: 048
     Dates: start: 20100524
  56. MEIACT [Concomitant]
     Dosage: 100 MG
     Route: 048
  57. MEIACT [Concomitant]
     Dosage: 300 MG
     Route: 048
     Dates: end: 20100618

REACTIONS (14)
  - Disseminated intravascular coagulation [Recovering/Resolving]
  - Infection [Not Recovered/Not Resolved]
  - Decubitus ulcer [Not Recovered/Not Resolved]
  - General physical health deterioration [Unknown]
  - Pyrexia [Unknown]
  - Sciatica [Unknown]
  - Pneumonia [Unknown]
  - Asthenia [Unknown]
  - Platelet count decreased [Unknown]
  - Psychotic disorder [Unknown]
  - Salivary hypersecretion [Not Recovered/Not Resolved]
  - Blood pressure diastolic decreased [Unknown]
  - Blood pressure systolic decreased [Unknown]
  - Neutrophil count decreased [Recovered/Resolved]
